FAERS Safety Report 4374534-2 (Version None)
Quarter: 2004Q2

REPORT INFORMATION
  Report Type: 
  Country: None (occurrence: None)
  Receive Date: 20040604
  Receipt Date: 20040524
  Transmission Date: 20050107
  Serious: Yes (Hospitalization)
  Sender: FDA-Public Use
  Company Number: 04P-163-0261828-00

PATIENT
  Age: 53 Year
  Sex: Female
  Weight: 53.0709 kg

DRUGS (7)
  1. HUMIRA [Suspect]
     Indication: RHEUMATOID ARTHRITIS
     Dosage: 40 MG, 1 IN 2 WK, SUBCUTANEOUS
     Route: 058
     Dates: start: 20031001, end: 20040520
  2. PREDNISONE [Concomitant]
  3. SULFADIAZINE [Concomitant]
  4. BISOPROLOL [Concomitant]
  5. GLUCOSAMINE [Concomitant]
  6. MULTI-VITAMINS [Concomitant]
  7. ARTHROTEC [Concomitant]

REACTIONS (5)
  - INTERVERTEBRAL DISC PROTRUSION [None]
  - POST PROCEDURAL PAIN [None]
  - POSTOPERATIVE INFECTION [None]
  - WOUND COMPLICATION [None]
  - WOUND DRAINAGE [None]
